FAERS Safety Report 16666610 (Version 1)
Quarter: 2019Q3

REPORT INFORMATION
  Report Type: Spontaneous
  Country: FR (occurrence: FR)
  Receive Date: 20190805
  Receipt Date: 20190805
  Transmission Date: 20191004
  Serious: Yes (Hospitalization)
  Sender: FDA-Public Use
  Company Number: FR-TEVA-2019-FR-1087715

PATIENT
  Age: 83 Year
  Sex: Male
  Weight: 62.5 kg

DRUGS (6)
  1. PRETERAX [INDAPAMIDE/PERINDOPRIL ERBUMINE] [Suspect]
     Active Substance: INDAPAMIDE\PERINDOPRIL ERBUMINE
     Indication: HYPERTENSION
     Dosage: 2.5 MG/0.625  ; 0.5 DOSAGE FORM PER 1 DAY
     Route: 048
     Dates: end: 20190702
  2. IMETH 15 MG/0,6 ML, SOLUTION INJECTABLE EN SERINGUE PR?REMPLIE [Suspect]
     Active Substance: METHOTREXATE
     Indication: VASCULITIS
     Dosage: 15 MG/0.6 ML ; 1 DOSAGE FORM PER 1 DAY
     Route: 058
     Dates: end: 20190702
  3. XARELTO [Suspect]
     Active Substance: RIVAROXABAN
     Indication: ATRIAL FIBRILLATION
     Dosage: 1 DOSAGE FORM PER 1 DAY
     Route: 048
     Dates: end: 20190702
  4. ACIDE FOLIQUE [Suspect]
     Active Substance: FOLIC ACID
     Indication: DRUG TOXICITY PROPHYLAXIS
     Dosage: 20 MILLIGRAM PER 1 WEEK
     Dates: end: 20190702
  5. BISOPROLOL (FUMARATE DE) [Suspect]
     Active Substance: BISOPROLOL FUMARATE
     Indication: HYPERTENSION
     Dosage: 25 MILLIGRAM PER 1 DAY
     Route: 048
     Dates: end: 20190702
  6. PREDNISONE. [Suspect]
     Active Substance: PREDNISONE
     Indication: VASCULITIS
     Dosage: 10 MILLIGRAM PER 1 DAY
     Route: 048
     Dates: end: 20190702

REACTIONS (2)
  - Pancytopenia [Not Recovered/Not Resolved]
  - Agranulocytosis [Not Recovered/Not Resolved]

NARRATIVE: CASE EVENT DATE: 20190701
